FAERS Safety Report 22663865 (Version 3)
Quarter: 2024Q1

REPORT INFORMATION
  Report Type: Spontaneous
  Country: JP (occurrence: JP)
  Receive Date: 20230703
  Receipt Date: 20240103
  Transmission Date: 20240409
  Serious: Yes (Death, Life-Threatening, Other)
  Sender: FDA-Public Use
  Company Number: JP-ASTELLAS-2023JP007719

PATIENT
  Age: 78 Year
  Sex: Female
  Weight: 52.5 kg

DRUGS (24)
  1. XOSPATA [Suspect]
     Active Substance: GILTERITINIB
     Indication: Acute myeloid leukaemia recurrent
     Route: 048
     Dates: start: 20230519, end: 20230527
  2. XOSPATA [Suspect]
     Active Substance: GILTERITINIB
     Indication: Acute myeloid leukaemia refractory
  3. DAUNORUBICIN HYDROCHLORIDE [Suspect]
     Active Substance: DAUNORUBICIN HYDROCHLORIDE
     Indication: Leukaemia recurrent
     Dosage: 42 MG/BODY, UNKNOWN FREQ.
     Route: 065
     Dates: start: 20230511, end: 20230512
  4. CYTARABINE [Suspect]
     Active Substance: CYTARABINE
     Indication: Product used for unknown indication
     Route: 065
     Dates: start: 20230513
  5. VENETOCLAX [Concomitant]
     Active Substance: VENETOCLAX
     Indication: Product used for unknown indication
     Dosage: UNK UNK, UNKNOWN FREQ.
     Route: 065
  6. AZACITIDINE [Concomitant]
     Active Substance: AZACITIDINE
     Indication: Product used for unknown indication
     Dosage: UNK UNK, UNKNOWN FREQ.
     Route: 065
  7. AMLODIPINE [Concomitant]
     Active Substance: AMLODIPINE BESYLATE
     Indication: Hypertension
     Route: 065
     Dates: end: 20230530
  8. IRBESARTAN [Concomitant]
     Active Substance: IRBESARTAN
     Indication: Hypertension
     Route: 065
     Dates: end: 20230530
  9. ESOMEPRAZOLE [Concomitant]
     Active Substance: ESOMEPRAZOLE
     Indication: Gastrooesophageal reflux disease
     Route: 065
     Dates: end: 20230530
  10. FEBUXOSTAT [Concomitant]
     Active Substance: FEBUXOSTAT
     Indication: Prophylaxis
     Route: 065
     Dates: start: 20230509
  11. FEBUXOSTAT [Concomitant]
     Active Substance: FEBUXOSTAT
     Route: 065
     Dates: end: 20230530
  12. LEVOFLOXACIN HEMIHYDRATE [Concomitant]
     Active Substance: LEVOFLOXACIN
     Indication: Febrile neutropenia
     Dosage: UNK UNK, UNKNOWN FREQ.
     Route: 048
     Dates: start: 20230511, end: 20230514
  13. VORICONAZOLE [Concomitant]
     Active Substance: VORICONAZOLE
     Indication: Prophylaxis
     Route: 048
     Dates: start: 20230511, end: 20230528
  14. ACETAMINOPHEN [Concomitant]
     Active Substance: ACETAMINOPHEN
     Indication: Pericarditis
     Route: 065
     Dates: start: 20230513, end: 20230517
  15. CEFEPIME [Concomitant]
     Active Substance: CEFEPIME HYDROCHLORIDE
     Indication: Febrile neutropenia
     Route: 041
     Dates: start: 20230515, end: 20230516
  16. MEROPENEM [Concomitant]
     Active Substance: MEROPENEM
     Indication: Febrile neutropenia
     Route: 041
     Dates: start: 20230516, end: 20230530
  17. LASIX [Concomitant]
     Active Substance: FUROSEMIDE
     Indication: Pericarditis
     Dosage: UNK UNK, UNKNOWN FREQ.
     Route: 065
     Dates: start: 20230517
  18. LASIX [Concomitant]
     Active Substance: FUROSEMIDE
     Indication: Fluid retention
     Route: 065
     Dates: start: 20230527, end: 20230530
  19. VANCOMYCIN [Concomitant]
     Active Substance: VANCOMYCIN
     Indication: Febrile neutropenia
     Dosage: 0.75 G, TWICE DAILY
     Route: 041
     Dates: start: 20230518
  20. VANCOMYCIN [Concomitant]
     Active Substance: VANCOMYCIN
     Route: 041
     Dates: end: 20230529
  21. URSO [Concomitant]
     Active Substance: URSODIOL
     Indication: Cholestasis
     Route: 065
     Dates: start: 20230524, end: 20230530
  22. SAMSCA [Concomitant]
     Active Substance: TOLVAPTAN
     Indication: Pericarditis
     Route: 065
     Dates: start: 20230527, end: 20230528
  23. SAMSCA [Concomitant]
     Active Substance: TOLVAPTAN
     Indication: Fluid retention
     Route: 065
     Dates: start: 20230529, end: 20230530
  24. MICAFUNGIN SODIUM [Concomitant]
     Active Substance: MICAFUNGIN SODIUM
     Indication: Prophylaxis
     Route: 041
     Dates: start: 20230529, end: 20230530

REACTIONS (2)
  - Cardiac tamponade [Fatal]
  - Pericarditis [Not Recovered/Not Resolved]

NARRATIVE: CASE EVENT DATE: 20230527
